FAERS Safety Report 6770827-X (Version None)
Quarter: 2010Q2

REPORT INFORMATION
  Report Type: 
  Country: None (occurrence: None)
  Receive Date: 20100614
  Receipt Date: 20100614
  Transmission Date: 20101027
  Serious: No
  Sender: FDA-Public Use
  Company Number: None

PATIENT
  Age: 60 Year
  Sex: Male
  Weight: 56.7 kg

DRUGS (1)
  1. CETUXIMAB [Suspect]
     Indication: TONGUE NEOPLASM MALIGNANT STAGE UNSPECIFIED
     Dosage: 400 MG Q WEEK IV
     Route: 042
     Dates: start: 20091231, end: 20100211

REACTIONS (7)
  - DERMATITIS [None]
  - DERMATITIS ACNEIFORM [None]
  - PRURITUS [None]
  - RADIATION SKIN INJURY [None]
  - SCAB [None]
  - SKIN TOXICITY [None]
  - URTICARIA [None]
